FAERS Safety Report 6805711-6 (Version None)
Quarter: 2010Q2

REPORT INFORMATION
  Report Type: 
  Country: None (occurrence: None)
  Receive Date: 20100628
  Receipt Date: 20080729
  Transmission Date: 20101027
  Serious: No
  Sender: FDA-Public Use
  Company Number: US-PFIZER INC-2008056005

PATIENT
  Sex: Male
  Weight: 73.9 kg

DRUGS (7)
  1. SUTENT [Suspect]
     Indication: RENAL CELL CARCINOMA
     Route: 048
     Dates: start: 20080616
  2. GLIPIZIDE [Concomitant]
  3. CANDESARTAN [Concomitant]
  4. GEMFIBROZIL [Concomitant]
  5. OMEPRAZOLE [Concomitant]
  6. SERTRALINE HCL [Concomitant]
  7. SPIRIVA [Concomitant]
     Indication: CHRONIC OBSTRUCTIVE PULMONARY DISEASE

REACTIONS (1)
  - BLOOD BILIRUBIN INCREASED [None]
